FAERS Safety Report 7344817-2 (Version None)
Quarter: 2011Q1

REPORT INFORMATION
  Report Type: 
  Country: None (occurrence: None)
  Receive Date: 20110310
  Receipt Date: 20100927
  Transmission Date: 20110831
  Serious: Yes (Hospitalization, Other)
  Sender: FDA-Public Use
  Company Number: US-BAYER-200937499NA

PATIENT
  Sex: Female
  Weight: 60 kg

DRUGS (7)
  1. VIRAL VACCINES [Concomitant]
     Dosage: UNK
     Dates: start: 20060921
  2. VIRAL VACCINES [Concomitant]
     Dosage: UNK
     Dates: start: 20070410
  3. YASMIN [Suspect]
     Indication: PREMENSTRUAL SYNDROME
     Dosage: UNK UNK, QD
     Route: 048
     Dates: start: 20040101, end: 20080101
  4. YASMIN [Suspect]
     Indication: ACNE
  5. VIRAL VACCINES [Concomitant]
     Dosage: UNK
     Dates: start: 20061215
  6. IBUPROFEN [Concomitant]
  7. NAPROXEN [Concomitant]

REACTIONS (6)
  - HIGH RISK PREGNANCY [None]
  - PULMONARY EMBOLISM [None]
  - DYSPNOEA [None]
  - CHEST PAIN [None]
  - DEEP VEIN THROMBOSIS [None]
  - PULMONARY THROMBOSIS [None]
